FAERS Safety Report 9054725 (Version 3)
Quarter: 2015Q2

REPORT INFORMATION
  Report Type: Report from Study
  Country: BR (occurrence: BR)
  Receive Date: 20130208
  Receipt Date: 20150603
  Transmission Date: 20150821
  Serious: Yes (Other)
  Sender: FDA-Public Use
  Company Number: PHHY2013BR011658

PATIENT
  Sex: Female
  Weight: 55 kg

DRUGS (14)
  1. LABIRIN [Concomitant]
     Active Substance: BETAHISTINE
     Indication: DIZZINESS
     Dosage: 2 DF, QD (16 MG) (STARTED 6 MONTHS AGO)
     Route: 048
  2. ASPIRIN. [Concomitant]
     Active Substance: ASPIRIN
     Indication: PROPHYLAXIS
     Dosage: 1 DF, QD (STARTED 5 YEARS AGO)
     Route: 048
  3. MANTIDAN [Concomitant]
     Active Substance: AMANTADINE HYDROCHLORIDE
     Indication: PRODUCT USED FOR UNKNOWN INDICATION
     Dosage: UNK
     Route: 065
  4. PANTOPRAZOLE [Concomitant]
     Active Substance: PANTOPRAZOLE SODIUM
     Indication: PRODUCT USED FOR UNKNOWN INDICATION
     Dosage: UNK
     Route: 065
  5. QUETIAPINE [Concomitant]
     Active Substance: QUETIAPINE
     Indication: SPEECH DISORDER
     Dosage: 1 DF, QD (STARTED 4 YEARS AGO)
     Route: 048
  6. PANTOPRAZOLE SODIUM. [Concomitant]
     Active Substance: PANTOPRAZOLE SODIUM
     Indication: PROPHYLAXIS
     Dosage: 1 DF, QD (STARTED 2 YEARS AGO)
     Route: 048
  7. AMANTADINE [Concomitant]
     Active Substance: AMANTADINE
     Indication: PARKINSON^S DISEASE
     Dosage: 3 DF, QD (100 MG) (STARTED 17 YEARS AGO)
     Route: 048
  8. QUETIAPINE [Concomitant]
     Active Substance: QUETIAPINE
     Indication: VISUAL IMPAIRMENT
  9. ACLASTA [Suspect]
     Active Substance: ZOLEDRONIC ACID
     Indication: OSTEOPOROSIS
     Dosage: 5 MG, 1 APPLICATION PER YEAR
     Route: 042
     Dates: start: 2012
  10. CYMBALTA [Concomitant]
     Active Substance: DULOXETINE HYDROCHLORIDE
     Indication: PRODUCT USED FOR UNKNOWN INDICATION
     Dosage: UNK
     Route: 065
  11. SEROQUEL [Concomitant]
     Active Substance: QUETIAPINE FUMARATE
     Indication: PRODUCT USED FOR UNKNOWN INDICATION
     Dosage: UNK
     Route: 065
  12. ACLASTA [Suspect]
     Active Substance: ZOLEDRONIC ACID
     Dosage: 5 MG, UNK
     Route: 042
     Dates: start: 201503
  13. STALEVO [Concomitant]
     Active Substance: CARBIDOPA\ENTACAPONE\LEVODOPA
     Indication: PARKINSON^S DISEASE
     Dosage: 3DF, QD(200 MG+ 50+12.5) (STARTED 4 YEARS AGO)
     Route: 048
     Dates: start: 2011
  14. SELEGILINE [Concomitant]
     Active Substance: SELEGILINE
     Indication: PARKINSON^S DISEASE
     Dosage: 3 DF, QD (5MG) (STARTED 17 YEARS AGO)
     Route: 048

REACTIONS (4)
  - Rib fracture [Not Recovered/Not Resolved]
  - Pain [Recovered/Resolved]
  - Spinal pain [Not Recovered/Not Resolved]
  - Influenza [Recovered/Resolved]
